FAERS Safety Report 5669427-4 (Version None)
Quarter: 2008Q1

REPORT INFORMATION
  Report Type: 
  Country: None (occurrence: None)
  Receive Date: 20080317
  Receipt Date: 20080313
  Transmission Date: 20080703
  Serious: Yes (Death)
  Sender: FDA-Public Use
  Company Number: A0715606A

PATIENT
  Age: 82 Year
  Sex: Male
  Weight: 43 kg

DRUGS (6)
  1. SERETIDE [Suspect]
     Route: 055
     Dates: start: 20080213, end: 20080222
  2. LEVOTHYROXINE SODIUM [Concomitant]
     Dates: start: 20060101, end: 20080222
  3. DIGOXIN [Concomitant]
     Dates: start: 20030101, end: 20080222
  4. CARBIDOPA AND LEVODOPA [Concomitant]
     Dosage: .25TAB FOUR TIMES PER DAY
     Route: 048
     Dates: start: 20060101, end: 20080222
  5. SPIRONOLACTONE [Concomitant]
     Dates: start: 20030101, end: 20080222
  6. METOCLOPRAMIDE HCL [Concomitant]
     Dates: start: 20080122, end: 20080222

REACTIONS (2)
  - DRUG ADMINISTRATION ERROR [None]
  - EMPHYSEMA [None]
